FAERS Safety Report 24705354 (Version 1)
Quarter: 2024Q4

REPORT INFORMATION
  Report Type: Spontaneous
  Country: US (occurrence: None)
  Receive Date: 20241205
  Receipt Date: 20241205
  Transmission Date: 20250115
  Serious: Yes (Death, Hospitalization)
  Sender: Public
  Company Number: None

PATIENT
  Age: 66 Year
  Sex: Male
  Weight: 78 kg

DRUGS (2)
  1. WARFARIN SODIUM [Suspect]
     Active Substance: WARFARIN SODIUM
     Indication: Atrial appendage closure
     Route: 048
     Dates: end: 20201206
  2. ENOXAPARIN [Suspect]
     Active Substance: ENOXAPARIN

REACTIONS (4)
  - Gastrointestinal haemorrhage [None]
  - Presyncope [None]
  - Hypotension [None]
  - International normalised ratio abnormal [None]

NARRATIVE: CASE EVENT DATE: 20201129
